FAERS Safety Report 9565618 (Version 1)
Quarter: 2013Q3

REPORT INFORMATION
  Report Type: Spontaneous
  Country: US (occurrence: US)
  Receive Date: 20130930
  Receipt Date: 20130930
  Transmission Date: 20140515
  Serious: No
  Sender: FDA-Public Use
  Company Number: US-COVIDIEN/TYCO HEALTHCARE/MALLINCKRODT-T201303808

PATIENT
  Age: 13 Year
  Sex: Male
  Weight: 56.24 kg

DRUGS (2)
  1. METHYLPHENIDATE HYDROCHLORIDE EXTENDED RELEASE TABLETS [Suspect]
     Indication: ATTENTION DEFICIT/HYPERACTIVITY DISORDER
     Dosage: 36 MG, QD
     Route: 048
     Dates: start: 20130520, end: 20130630
  2. PROZAC [Concomitant]
     Indication: ANXIETY
     Dosage: 20 MG, UNK

REACTIONS (3)
  - Disturbance in attention [Not Recovered/Not Resolved]
  - Self esteem decreased [Not Recovered/Not Resolved]
  - Affective disorder [Recovering/Resolving]
